FAERS Safety Report 6125800-1 (Version None)
Quarter: 2009Q1

REPORT INFORMATION
  Report Type: 
  Country: None (occurrence: None)
  Receive Date: 20090319
  Receipt Date: 20090319
  Transmission Date: 20090719
  Serious: Yes (Hospitalization)
  Sender: FDA-Public Use
  Company Number: None

PATIENT
  Age: 64 Year
  Sex: Male

DRUGS (7)
  1. TADALAFIL 10MG [Suspect]
     Indication: HEAD AND NECK CANCER
     Dosage: ONCE A DAY
     Dates: start: 20090106, end: 20090125
  2. SEROQUEL [Concomitant]
  3. REMERON [Concomitant]
  4. MORPHINE [Concomitant]
  5. HYDROCODONE BITARTRATE [Concomitant]
  6. SENNA [Concomitant]
  7. BUPROPIN [Concomitant]

REACTIONS (5)
  - FISTULA [None]
  - PURULENT DISCHARGE [None]
  - SOFT TISSUE NECROSIS [None]
  - WOUND DEHISCENCE [None]
  - WOUND SECRETION [None]
